FAERS Safety Report 7427596 (Version 16)
Quarter: 2015Q1

REPORT INFORMATION
  Report Type: Report from Study
  Country: CA (occurrence: CA)
  Receive Date: 20100622
  Receipt Date: 20150227
  Transmission Date: 20150721
  Serious: Yes (Other)
  Sender: FDA-Public Use
  Company Number: PHHY2010CA38892

PATIENT
  Age: 79 Year
  Sex: Female

DRUGS (3)
  1. SANDOSTATIN LAR DEPOT [Suspect]
     Active Substance: OCTREOTIDE ACETATE
     Indication: CARCINOID TUMOUR
     Dosage: 40 MG, EVERY 4 WEEKS
     Route: 030
     Dates: start: 20090320
  2. SANDOSTATIN LAR DEPOT [Suspect]
     Active Substance: OCTREOTIDE ACETATE
     Dosage: 40 MG, EVERY 3 WEEKS
     Route: 030
  3. SANDOSTATIN LAR DEPOT [Suspect]
     Active Substance: OCTREOTIDE ACETATE
     Dosage: 50 MG, EVERY 3 WEEKS
     Route: 030

REACTIONS (22)
  - Pneumonia [Recovering/Resolving]
  - Heart rate decreased [Unknown]
  - Abdominal infection [Unknown]
  - Tremor [Unknown]
  - Fatigue [Unknown]
  - Abdominal pain lower [Unknown]
  - Drug effect decreased [Unknown]
  - Abdominal distension [Unknown]
  - Pain [Unknown]
  - Decreased appetite [Unknown]
  - Urinary tract infection [Unknown]
  - Cough [Recovering/Resolving]
  - Muscular weakness [Unknown]
  - Vomiting [Recovered/Resolved]
  - Pulmonary congestion [Recovering/Resolving]
  - Hot flush [Unknown]
  - Abdominal pain [Unknown]
  - Intestinal obstruction [Unknown]
  - Blood pressure systolic increased [Unknown]
  - Blood pressure decreased [Unknown]
  - Diarrhoea [Unknown]
  - Nausea [Unknown]

NARRATIVE: CASE EVENT DATE: 20140110
